FAERS Safety Report 8328580-4 (Version None)
Quarter: 2012Q2

REPORT INFORMATION
  Report Type: 
  Country: None (occurrence: None)
  Receive Date: 20120430
  Receipt Date: 20120419
  Transmission Date: 20120825
  Serious: Yes (Death, Other)
  Sender: FDA-Public Use
  Company Number: 2012P1013159

PATIENT
  Sex: Female

DRUGS (5)
  1. PROCHLORPERAZINE [Concomitant]
  2. OXYCONTIN [Concomitant]
  3. FAMOTIDINE [Suspect]
     Dosage: PO
     Route: 048
  4. PROCHLORPERAZINE [Concomitant]
     Dosage: PO
     Route: 048
  5. OXYCONTIN [Concomitant]

REACTIONS (1)
  - HALLUCINATION [None]
